FAERS Safety Report 22355473 (Version 3)
Quarter: 2023Q2

REPORT INFORMATION
  Report Type: Spontaneous
  Country: IT (occurrence: IT)
  Receive Date: 20230523
  Receipt Date: 20230607
  Transmission Date: 20230721
  Serious: Yes (Disabling, Other)
  Sender: FDA-Public Use
  Company Number: IT-SAMSUNG BIOEPIS-SB-2023-12535

PATIENT
  Age: 15 Year
  Sex: Male
  Weight: 34 kg

DRUGS (3)
  1. REMICADE [Suspect]
     Active Substance: INFLIXIMAB
     Indication: Crohn^s disease
     Dosage: 5 MG/KG, FIRST DOSE AND TWO WEEKS LATER, SECOND DOSE (A 5 MG/KG DOSAGE WAS ADMINISTERED, PRETREATED
     Route: 042
  2. CHLORPHENIRAMINE MALEATE [Concomitant]
     Active Substance: CHLORPHENIRAMINE MALEATE
     Indication: Premedication
     Dosage: UNKNOWN
     Route: 065
  3. HYDROCORTISONE [Concomitant]
     Active Substance: HYDROCORTISONE
     Indication: Premedication
     Route: 065

REACTIONS (3)
  - Paradoxical pain [Recovered/Resolved]
  - Type III immune complex mediated reaction [Recovered/Resolved]
  - Paradoxical drug reaction [Unknown]
